FAERS Safety Report 19103423 (Version 3)
Quarter: 2021Q3

REPORT INFORMATION
  Report Type: Spontaneous
  Country: IT (occurrence: IT)
  Receive Date: 20210407
  Receipt Date: 20210712
  Transmission Date: 20211014
  Serious: Yes (Other)
  Sender: FDA-Public Use
  Company Number: NVSC2021IT075160

PATIENT
  Age: 43 Year
  Sex: Male

DRUGS (1)
  1. GILENYA [Suspect]
     Active Substance: FINGOLIMOD HYDROCHLORIDE
     Indication: MULTIPLE SCLEROSIS
     Dosage: 1 DF, QD
     Route: 048
     Dates: start: 20080804

REACTIONS (4)
  - Haemorrhage [Unknown]
  - Squamous cell carcinoma [Recovering/Resolving]
  - Skin plaque [Unknown]
  - Carcinoma in situ [Recovering/Resolving]

NARRATIVE: CASE EVENT DATE: 202009
